FAERS Safety Report 18270831 (Version 2)
Quarter: 2020Q4

REPORT INFORMATION
  Report Type: Spontaneous
  Country: US (occurrence: US)
  Receive Date: 20200915
  Receipt Date: 20201008
  Transmission Date: 20210113
  Serious: No
  Sender: FDA-Public Use
  Company Number: US-PFIZER INC-2020354112

PATIENT
  Age: 57 Year
  Sex: Male

DRUGS (2)
  1. XELJANZ [Suspect]
     Active Substance: TOFACITINIB CITRATE
     Dosage: 5 MG
     Dates: start: 20200805, end: 20200930
  2. XELJANZ [Suspect]
     Active Substance: TOFACITINIB CITRATE
     Dosage: UNK
     Dates: start: 20200905

REACTIONS (8)
  - Oropharyngeal pain [Unknown]
  - Oral candidiasis [Unknown]
  - Hypertension [Unknown]
  - Tongue discolouration [Unknown]
  - Blister [Unknown]
  - Nasal congestion [Unknown]
  - Gingival swelling [Unknown]
  - Stomatitis [Unknown]

NARRATIVE: CASE EVENT DATE: 202009
